FAERS Safety Report 22662914 (Version 3)
Quarter: 2023Q4

REPORT INFORMATION
  Report Type: Spontaneous
  Country: US (occurrence: US)
  Receive Date: 20230702
  Receipt Date: 20231013
  Transmission Date: 20240109
  Serious: Yes (Other)
  Sender: FDA-Public Use
  Company Number: US-AMGEN-USASP2023111172

PATIENT
  Age: 55 Year
  Sex: Female

DRUGS (14)
  1. EVENITY [Suspect]
     Active Substance: ROMOSOZUMAB-AQQG
     Indication: Osteoporosis
     Dosage: 210 MILLIGRAM, QMO
     Route: 058
     Dates: start: 202302, end: 202306
  2. PROLIA [Suspect]
     Active Substance: DENOSUMAB
     Indication: Product used for unknown indication
     Dosage: UNK
     Route: 065
  3. TYMLOS [Concomitant]
     Active Substance: ABALOPARATIDE
     Indication: Stress fracture
     Dosage: UNK
  4. ESTRADIOL [Concomitant]
     Active Substance: ESTRADIOL
     Dosage: UNK
  5. ESTRADIOL [Concomitant]
     Active Substance: ESTRADIOL
     Route: 058
  6. ESTRADIOL [Concomitant]
     Active Substance: ESTRADIOL
     Route: 058
  7. PROGESTERONE [Concomitant]
     Active Substance: PROGESTERONE
     Indication: Hormone replacement therapy
     Dosage: UNK
  8. PROGESTERONE [Concomitant]
     Active Substance: PROGESTERONE
     Route: 062
  9. PROGESTERONE [Concomitant]
     Active Substance: PROGESTERONE
     Route: 062
  10. CALCIUM [Concomitant]
     Active Substance: CALCIUM
     Dosage: UNK
  11. VITAMIN E [Concomitant]
     Active Substance: .ALPHA.-TOCOPHEROL
     Dosage: UNK
  12. IRON [Concomitant]
     Active Substance: IRON
     Dosage: 325 MILLIGRAM, EVERY OTHER DAY
  13. TERIPARATIDE [Concomitant]
     Active Substance: TERIPARATIDE
     Dosage: UNK, UNK
     Route: 058
  14. TERIPARATIDE [Concomitant]
     Active Substance: TERIPARATIDE
     Route: 058

REACTIONS (13)
  - Foot fracture [Not Recovered/Not Resolved]
  - Neck pain [Unknown]
  - C-telopeptide decreased [Unknown]
  - Hypergammaglobulinaemia benign monoclonal [Unknown]
  - Fracture malunion [Unknown]
  - Oedema peripheral [Unknown]
  - Hypoaesthesia [Unknown]
  - Inflammation [Unknown]
  - Paraesthesia [Unknown]
  - Neuralgia [Unknown]
  - Burning sensation [Unknown]
  - Arthralgia [Unknown]
  - Headache [Unknown]

NARRATIVE: CASE EVENT DATE: 20230101
